FAERS Safety Report 13557667 (Version 1)
Quarter: 2017Q2

REPORT INFORMATION
  Report Type: Spontaneous
  Country: EG (occurrence: EG)
  Receive Date: 20170518
  Receipt Date: 20170518
  Transmission Date: 20170830
  Serious: Yes (Death)
  Sender: FDA-Public Use
  Company Number: EG-SA-2017SA088928

PATIENT
  Age: 16 Month
  Sex: Male
  Weight: 10 kg

DRUGS (1)
  1. CEREZYME [Suspect]
     Active Substance: IMIGLUCERASE
     Indication: GAUCHER^S DISEASE TYPE III
     Dosage: DOSE: 60  FREQUENCY: 12
     Route: 042
     Dates: start: 20160407, end: 20160519

REACTIONS (4)
  - Pneumonia [Fatal]
  - Lower respiratory tract infection [Fatal]
  - Status epilepticus [Fatal]
  - Respiratory failure [Fatal]

NARRATIVE: CASE EVENT DATE: 2016
